FAERS Safety Report 24710916 (Version 1)
Quarter: 2024Q4

REPORT INFORMATION
  Report Type: Spontaneous
  Country: US (occurrence: US)
  Receive Date: 20241209
  Receipt Date: 20241209
  Transmission Date: 20250114
  Serious: Yes (Hospitalization)
  Sender: MYLAN
  Company Number: US-MYLANLABS-2024M1107589

PATIENT
  Age: 59 Year
  Sex: Male

DRUGS (5)
  1. POTASSIUM [Suspect]
     Active Substance: POTASSIUM
     Indication: Pituitary-dependent Cushing^s syndrome
     Dosage: UNK
     Route: 065
  2. OCTREOTIDE [Suspect]
     Active Substance: OCTREOTIDE
     Indication: Pituitary-dependent Cushing^s syndrome
     Dosage: 200 MILLIGRAM, TID
     Route: 065
  3. KETOCONAZOLE [Suspect]
     Active Substance: KETOCONAZOLE
     Indication: Pituitary-dependent Cushing^s syndrome
     Dosage: 200 MILLIGRAM, TID
     Route: 048
  4. KETOCONAZOLE [Suspect]
     Active Substance: KETOCONAZOLE
     Dosage: 400 MILLIGRAM, TID
     Route: 048
  5. INSULIN NOS [Suspect]
     Active Substance: INSULIN NOS
     Indication: Pituitary-dependent Cushing^s syndrome
     Dosage: UNK
     Route: 065

REACTIONS (2)
  - Drug ineffective for unapproved indication [Unknown]
  - Off label use [Unknown]
